FAERS Safety Report 9518745 (Version 3)
Quarter: 2014Q1

REPORT INFORMATION
  Report Type: Spontaneous
  Country: US (occurrence: None)
  Receive Date: 20130910
  Receipt Date: 20140109
  Transmission Date: 20141002
  Serious: Yes (Hospitalization)
  Sender: FDA-Public Use
  Company Number: CIO13052028

PATIENT
  Sex: Female

DRUGS (1)
  1. PEPTO-BISMOL [Suspect]
     Indication: GASTRIC DISORDER
     Dosage: 1 MOUTHFUL
     Route: 048
     Dates: start: 20130831

REACTIONS (6)
  - Anaphylactic shock [None]
  - Swollen tongue [None]
  - Pharyngeal oedema [None]
  - Pruritus [None]
  - Flushing [None]
  - Wrong technique in drug usage process [None]
